FAERS Safety Report 9439188 (Version 3)
Quarter: 2014Q1

REPORT INFORMATION
  Report Type: Spontaneous
  Country: US (occurrence: US)
  Receive Date: 20130803
  Receipt Date: 20140214
  Transmission Date: 20141002
  Serious: Yes (Hospitalization)
  Sender: FDA-Public Use
  Company Number: US-B.I. PHARMACEUTICALS,INC./RIDGEFIELD-2013-BI-23017BP

PATIENT
  Age: 64 Year
  Sex: Male
  Weight: 99.79 kg

DRUGS (11)
  1. PRADAXA [Suspect]
     Indication: ANTICOAGULANT THERAPY
     Dates: start: 20120111, end: 20120907
  2. LISINOPRIL [Concomitant]
     Dates: start: 20120125, end: 20120806
  3. SEROQUEL [Concomitant]
     Dates: start: 20120109
  4. GABAPENTIN [Concomitant]
     Dates: start: 20120515
  5. ATORVASTATIN [Concomitant]
     Dates: start: 20120615
  6. AMIODARONE [Concomitant]
  7. POTASSIUM [Concomitant]
     Dates: start: 20120927
  8. FUROSEMIDE [Concomitant]
     Dates: start: 20120911
  9. HUMALOG MIX [Concomitant]
     Dates: start: 20120410
  10. CARTIA [Concomitant]
     Dates: start: 20120125, end: 20120904
  11. FENOFIBRATE [Concomitant]
     Dates: start: 20120125

REACTIONS (3)
  - Intra-abdominal haemorrhage [Unknown]
  - Gastrointestinal haemorrhage [Unknown]
  - Heart rate irregular [Unknown]
